FAERS Safety Report 6488989-0 (Version None)
Quarter: 2009Q4

REPORT INFORMATION
  Report Type: 
  Country: None (occurrence: None)
  Receive Date: 20091210
  Receipt Date: 20091201
  Transmission Date: 20100525
  Serious: Yes (Other)
  Sender: FDA-Public Use
  Company Number: US-SANOFI-AVENTIS-A03200905057

PATIENT
  Age: 83 Year
  Sex: Female

DRUGS (4)
  1. MULTAQ [Suspect]
     Indication: ATRIAL FIBRILLATION
     Dosage: UNK
     Route: 048
     Dates: start: 20091006, end: 20091015
  2. SIMVASTATIN [Concomitant]
  3. PLAVIX [Concomitant]
     Indication: CORONARY ARTERY DISEASE
     Route: 048
  4. ISOSORBIDE [Concomitant]

REACTIONS (2)
  - BLOOD CREATININE INCREASED [None]
  - BLOOD UREA INCREASED [None]
